FAERS Safety Report 4280715-9 (Version None)
Quarter: 2004Q1

REPORT INFORMATION
  Report Type: 
  Country: None (occurrence: None)
  Receive Date: 20040129
  Receipt Date: 20030930
  Transmission Date: 20041129
  Serious: No
  Sender: FDA-Public Use
  Company Number: US-BRISTOL-MYERS SQUIBB COMPANY-12397048

PATIENT
  Age: 84 Year
  Sex: Female
  Weight: 63 kg

DRUGS (3)
  1. METAGLIP [Suspect]
     Indication: DIABETES MELLITUS
     Route: 048
     Dates: end: 20030901
  2. CARDIAC MEDICATIONS [Concomitant]
  3. BLOOD PRESSURE MEDICATION [Concomitant]

REACTIONS (2)
  - DYSPNOEA [None]
  - RASH PRURITIC [None]
